FAERS Safety Report 8189968-8 (Version None)
Quarter: 2012Q1

REPORT INFORMATION
  Report Type: 
  Country: None (occurrence: None)
  Receive Date: 20120307
  Receipt Date: 20120228
  Transmission Date: 20120608
  Serious: Yes (Death, Life-Threatening)
  Sender: FDA-Public Use
  Company Number: JP-JNJFOC-20120302294

PATIENT
  Age: 49 Year
  Sex: Male
  Weight: 45 kg

DRUGS (6)
  1. ANGINAL [Concomitant]
     Route: 048
  2. RISPERDAL CONSTA [Suspect]
     Indication: SCHIZOPHRENIA
     Route: 030
     Dates: start: 20101221, end: 20101221
  3. ALOSENN [Concomitant]
     Route: 048
  4. MAGNESIUM OXIDE [Concomitant]
     Route: 048
  5. RISPERDAL CONSTA [Suspect]
     Route: 030
     Dates: start: 20080608, end: 20101207
  6. LEVOMEPROMAZINE MALEATE [Concomitant]
     Indication: SCHIZOPHRENIA
     Dosage: 120-170 MG
     Route: 048
     Dates: start: 20110620, end: 20120115

REACTIONS (4)
  - DYSPHAGIA [None]
  - SEPSIS [None]
  - HYPOGLYCAEMIA [None]
  - COMA [None]
